FAERS Safety Report 6175621-9 (Version None)
Quarter: 2009Q2

REPORT INFORMATION
  Report Type: 
  Country: None (occurrence: None)
  Receive Date: 20090429
  Receipt Date: 20090422
  Transmission Date: 20091009
  Serious: Yes (Other)
  Sender: FDA-Public Use
  Company Number: 2008TJ0280FU1

PATIENT
  Age: 18 Year
  Sex: Female

DRUGS (7)
  1. TWINJECT 0.3 [Suspect]
     Indication: ANAPHYLACTIC REACTION
     Dosage: 0.3 MG, PRN
     Dates: start: 20081111, end: 20081111
  2. PULMLCORT NEBUAMP (BUDESONIDE) [Concomitant]
  3. EPIPEN (EPINEPHRINE) 0.3 MG [Concomitant]
  4. SYMBICORT [Concomitant]
  5. REACTIN (CETIRIZINE) [Concomitant]
  6. SINGULAIR (MONTELUKAST), 10 MG [Concomitant]
  7. ATIVAN [Concomitant]

REACTIONS (2)
  - DEVICE MALFUNCTION [None]
  - PRODUCT QUALITY ISSUE [None]
